FAERS Safety Report 13836386 (Version 1)
Quarter: 2017Q3

REPORT INFORMATION
  Report Type: Spontaneous
  Country: KR (occurrence: KR)
  Receive Date: 20170804
  Receipt Date: 20170804
  Transmission Date: 20171127
  Serious: Yes (Hospitalization)
  Sender: FDA-Public Use
  Company Number: PHHY2017KR113632

PATIENT
  Sex: Male

DRUGS (1)
  1. EXELON PATCH [Suspect]
     Active Substance: RIVASTIGMINE
     Indication: PRODUCT USED FOR UNKNOWN INDICATION
     Dosage: 9.5 MG (PATCH 10 (CM2), 18 MG RIVASTIGMINE BASE)  4 PATCHES
     Route: 062

REACTIONS (5)
  - Syncope [Unknown]
  - Drug administered at inappropriate site [Unknown]
  - Tachycardia [Not Recovered/Not Resolved]
  - Vomiting [Unknown]
  - Drug administration error [Unknown]

NARRATIVE: CASE EVENT DATE: 20170731
